FAERS Safety Report 6234788-4 (Version None)
Quarter: 2009Q2

REPORT INFORMATION
  Report Type: 
  Country: None (occurrence: None)
  Receive Date: 20090618
  Receipt Date: 20090611
  Transmission Date: 20091009
  Serious: Yes (Hospitalization, Other)
  Sender: FDA-Public Use
  Company Number: PHEH2009US06097

PATIENT
  Age: 74 Year
  Sex: Female
  Weight: 92.063 kg

DRUGS (5)
  1. EXFORGE HCT [Suspect]
     Indication: HYPERTENSION
     Dosage: 10 AML/ 320 VAL/ 25 HCTZ, QD
     Route: 048
     Dates: start: 20090602, end: 20090608
  2. AVALIDE [Concomitant]
     Dosage: UNK
     Dates: start: 20090608
  3. SYNTHROID [Concomitant]
     Dosage: 150 MCG, QD
  4. CALCET [Concomitant]
     Dosage: UNK
  5. ACETAMINOPHEN AND HYDROCODONE BITARTRATE [Concomitant]
     Dosage: 7.5/500, Q 4-6 HR

REACTIONS (5)
  - BLOOD CREATININE INCREASED [None]
  - BLOOD POTASSIUM INCREASED [None]
  - BLOOD UREA INCREASED [None]
  - MALAISE [None]
  - OTITIS MEDIA [None]
